FAERS Safety Report 15541364 (Version 1)
Quarter: 2018Q4

REPORT INFORMATION
  Report Type: Spontaneous
  Country: JP (occurrence: JP)
  Receive Date: 20181023
  Receipt Date: 20181023
  Transmission Date: 20190205
  Serious: Yes (Hospitalization)
  Sender: FDA-Public Use
  Company Number: JP-PFIZER INC-2018417506

PATIENT
  Age: 3 Year

DRUGS (4)
  1. LASIX [Concomitant]
     Active Substance: FUROSEMIDE
     Dosage: 8 MG, UNK
     Route: 048
  2. ALDACTONE A 10% [Suspect]
     Active Substance: SPIRONOLACTONE
     Dosage: 80 MG, UNK
     Route: 048
  3. ALDACTONE A 10% [Suspect]
     Active Substance: SPIRONOLACTONE
     Dosage: 8 MG, UNK
     Route: 048
  4. TANATRIL [Concomitant]
     Active Substance: IMIDAPRIL
     Dosage: 5.5 MG, UNK

REACTIONS (3)
  - Respiratory symptom [Unknown]
  - Product dispensing error [Unknown]
  - Accidental overdose [Unknown]
